FAERS Safety Report 25266551 (Version 1)
Quarter: 2025Q2

REPORT INFORMATION
  Report Type: Spontaneous
  Country: CA (occurrence: CA)
  Receive Date: 20250505
  Receipt Date: 20250505
  Transmission Date: 20250716
  Serious: Yes (Other)
  Sender: AMGEN
  Company Number: CA-AMGEN-CANSP2025084773

PATIENT
  Age: 72 Year
  Sex: Female
  Weight: 56 kg

DRUGS (3)
  1. PROLIA [Suspect]
     Active Substance: DENOSUMAB
     Indication: Osteoporosis
     Dosage: UNK UNK, Q6MO (367.0 DAYS)
     Route: 058
  2. KEPPRA [Concomitant]
     Active Substance: LEVETIRACETAM
     Route: 065
  3. LUMIGAN [Concomitant]
     Active Substance: BIMATOPROST
     Route: 065

REACTIONS (9)
  - Alopecia [Unknown]
  - Back pain [Unknown]
  - Depressed mood [Unknown]
  - Fatigue [Unknown]
  - Impaired healing [Unknown]
  - Impaired quality of life [Unknown]
  - Nausea [Unknown]
  - Stress [Unknown]
  - Tooth extraction [Unknown]
